FAERS Safety Report 12950029 (Version 1)
Quarter: 2016Q4

REPORT INFORMATION
  Report Type: Spontaneous
  Country: US (occurrence: US)
  Receive Date: 20161116
  Receipt Date: 20161116
  Transmission Date: 20170207
  Serious: Yes (Death)
  Sender: FDA-Public Use
  Company Number: None

PATIENT
  Age: 67 Year
  Sex: Male
  Weight: 72.8 kg

DRUGS (1)
  1. NIVOLUMAB [Suspect]
     Active Substance: NIVOLUMAB
     Indication: NON-SMALL CELL LUNG CANCER
     Dosage: 230 MG OTHER IV
     Route: 042
     Dates: start: 20160707, end: 20160721

REACTIONS (3)
  - Pneumonia [None]
  - Sepsis [None]
  - Alveolitis allergic [None]

NARRATIVE: CASE EVENT DATE: 20160721
